FAERS Safety Report 23430627 (Version 2)
Quarter: 2024Q1

REPORT INFORMATION
  Report Type: Spontaneous
  Country: JP (occurrence: None)
  Receive Date: 20240123
  Receipt Date: 20240206
  Transmission Date: 20240410
  Serious: Yes (Death)
  Sender: FDA-Public Use
  Company Number: 2024A015500

PATIENT
  Age: 70 Year
  Sex: Male

DRUGS (18)
  1. DAPAGLIFLOZIN [Suspect]
     Active Substance: DAPAGLIFLOZIN
     Indication: Chronic kidney disease
     Dosage: AFTER BREAKFAST
     Route: 048
  2. OPDIVO [Suspect]
     Active Substance: NIVOLUMAB
     Indication: Oesophageal carcinoma
     Dosage: 360.0MG UNKNOWN
     Route: 041
     Dates: start: 20231024, end: 20231024
  3. YERVOY [Suspect]
     Active Substance: IPILIMUMAB
     Dosage: 50.0MG UNKNOWN
     Route: 041
     Dates: start: 20231024, end: 20231024
  4. PIMOBENDAN [Concomitant]
     Active Substance: PIMOBENDAN
     Dosage: AFTER BREAKFAST AND EVENING MEAL
     Route: 048
  5. BISOPROLOL [Concomitant]
     Active Substance: BISOPROLOL\BISOPROLOL FUMARATE
     Dosage: AFTER BREAKFAST
     Route: 048
  6. NICORANDIL [Concomitant]
     Active Substance: NICORANDIL
     Dosage: AFTER BREAKFAST AND EVENING MEAL
     Route: 048
  7. ENTRESTO [Concomitant]
     Active Substance: SACUBITRIL\VALSARTAN
     Dosage: AFTER BREAKFAST AND EVENING MEAL
     Route: 048
  8. CLOPIDOGREL [Concomitant]
     Active Substance: CLOPIDOGREL BISULFATE
     Dosage: AFTER BREAKFAST
     Route: 048
  9. VONOPRAZAN FUMARATE [Concomitant]
     Active Substance: VONOPRAZAN FUMARATE
     Dosage: AFTER BREAKFAST
     Route: 048
  10. ROSUVASTATIN [Concomitant]
     Active Substance: ROSUVASTATIN
     Dosage: AFTER BREAKFAST
     Route: 048
  11. FUROSEMIDE [Concomitant]
     Active Substance: FUROSEMIDE
     Dosage: AFTER BREAKFAST
     Route: 048
  12. SPIRONOLACTONE [Concomitant]
     Active Substance: SPIRONOLACTONE
     Dosage: AFTER BREAKFAST
     Route: 048
  13. SAMSCA [Concomitant]
     Active Substance: TOLVAPTAN
     Dosage: AFTER BREAKFAST
     Route: 048
  14. TORSEMIDE [Concomitant]
     Active Substance: TORSEMIDE
     Dosage: AFTER BREAKFAST
     Route: 048
  15. LUNESTA [Concomitant]
     Active Substance: ESZOPICLONE
     Dosage: BEFORE BEDTIME
     Route: 048
  16. LYRICA [Concomitant]
     Active Substance: PREGABALIN
     Dosage: AFTER BREAKFAST AND EVENING MEAL
     Route: 048
  17. CODEINE PHOSPHATE [Concomitant]
     Active Substance: CODEINE PHOSPHATE
     Dosage: AFTER BREAKFAST AND EVENING MEAL
     Route: 048
  18. ELOBIXIBAT [Concomitant]
     Active Substance: ELOBIXIBAT
     Dosage: AFTER BREAKFAST
     Route: 048

REACTIONS (1)
  - Cytokine release syndrome [Fatal]

NARRATIVE: CASE EVENT DATE: 20231106
